FAERS Safety Report 24201700 (Version 5)
Quarter: 2025Q1

REPORT INFORMATION
  Report Type: Spontaneous
  Country: US (occurrence: US)
  Receive Date: 20240812
  Receipt Date: 20250217
  Transmission Date: 20250409
  Serious: Yes (Hospitalization, Other)
  Sender: SANOFI AVENTIS
  Company Number: US-SA-SAC20240808001511

PATIENT
  Age: 74 Year
  Sex: Male

DRUGS (2)
  1. REZUROCK [Suspect]
     Active Substance: BELUMOSUDIL
     Indication: Chronic graft versus host disease
     Dosage: 200 MG, BID
     Route: 048
     Dates: start: 20240718
  2. REZUROCK [Suspect]
     Active Substance: BELUMOSUDIL
     Dosage: 200 MG, QD
     Route: 048
     Dates: start: 202407

REACTIONS (7)
  - Fall [Unknown]
  - Hip fracture [Unknown]
  - Diabetes mellitus [Unknown]
  - Visual impairment [Unknown]
  - Fatigue [Unknown]
  - Drug ineffective [Unknown]
  - Inappropriate schedule of product administration [Unknown]

NARRATIVE: CASE EVENT DATE: 20240101
